FAERS Safety Report 20075218 (Version 1)
Quarter: 2021Q4

REPORT INFORMATION
  Report Type: Spontaneous
  Country: BR (occurrence: None)
  Receive Date: 20211116
  Receipt Date: 20211116
  Transmission Date: 20220303
  Serious: Yes (Hospitalization, Other)
  Sender: FDA-Public Use
  Company Number: 2021A802882

PATIENT
  Sex: Female

DRUGS (2)
  1. DAPAGLIFLOZIN [Suspect]
     Active Substance: DAPAGLIFLOZIN
     Dosage: 1 TABLET
     Route: 048
     Dates: start: 2021
  2. JARDIANCE [Concomitant]
     Active Substance: EMPAGLIFLOZIN

REACTIONS (6)
  - Thrombosis [Unknown]
  - Pulmonary embolism [Unknown]
  - Chest pain [Unknown]
  - Pneumonia [Unknown]
  - Nodule [Unknown]
  - Product packaging quantity issue [Unknown]
